FAERS Safety Report 7297252-X (Version None)
Quarter: 2011Q1

REPORT INFORMATION
  Report Type: 
  Country: None (occurrence: None)
  Receive Date: 20110216
  Receipt Date: 20110114
  Transmission Date: 20110831
  Serious: No
  Sender: FDA-Public Use
  Company Number: US-BAYER-2011-005502

PATIENT
  Sex: Female
  Weight: 60 kg

DRUGS (2)
  1. CARAFATE [Concomitant]
  2. ALEVE (CAPLET) [Suspect]
     Indication: ARTHRITIS
     Dosage: DAILY DOSE 1 DF
     Route: 048
     Dates: start: 20110101

REACTIONS (3)
  - RASH [None]
  - RASH MACULAR [None]
  - PRURITUS [None]
